FAERS Safety Report 11123581 (Version 1)
Quarter: 2015Q2

REPORT INFORMATION
  Report Type: Spontaneous
  Country: AR (occurrence: AR)
  Receive Date: 20150519
  Receipt Date: 20150519
  Transmission Date: 20150821
  Serious: Yes (Other)
  Sender: FDA-Public Use
  Company Number: AR-AMGEN-ARGSP2015047900

PATIENT
  Age: 69 Year
  Sex: Male

DRUGS (1)
  1. ENBREL [Suspect]
     Active Substance: ETANERCEPT
     Indication: RHEUMATOID ARTHRITIS
     Dosage: 50 MG, WEEKLY
     Route: 065
     Dates: start: 20100811

REACTIONS (6)
  - Fall [Unknown]
  - Pain [Not Recovered/Not Resolved]
  - Hypokinesia [Unknown]
  - Upper limb fracture [Unknown]
  - Liver disorder [Recovering/Resolving]
  - Laboratory test abnormal [Recovering/Resolving]
